FAERS Safety Report 20199524 (Version 1)
Quarter: 2021Q4

REPORT INFORMATION
  Report Type: Spontaneous
  Country: US (occurrence: US)
  Receive Date: 20211217
  Receipt Date: 20211217
  Transmission Date: 20220303
  Serious: No
  Sender: FDA-Public Use
  Company Number: US-PACIRA-2021000302

PATIENT
  Sex: Female

DRUGS (3)
  1. EXPAREL [Suspect]
     Active Substance: BUPIVACAINE
     Dosage: 20ML EXPAREL, 30ML ^25 BUPIVACAINE^ AND 40ML NORMAL SALINE
     Route: 065
  2. BUPIVACAINE [Suspect]
     Active Substance: BUPIVACAINE
     Dosage: 20ML EXPAREL, 30ML ^25 BUPIVACAINE^ AND 40ML NORMAL SALINE
     Route: 065
  3. SODIUM CHLORIDE [Concomitant]
     Active Substance: SODIUM CHLORIDE
     Dosage: 20ML EXPAREL, 30ML ^25 BUPIVACAINE^ AND 40ML NORMAL SALINE
     Route: 065

REACTIONS (4)
  - Off label use [Unknown]
  - Bradycardia [Unknown]
  - Paraesthesia oral [Unknown]
  - Dizziness [Unknown]
